FAERS Safety Report 4821660-7 (Version None)
Quarter: 2005Q4

REPORT INFORMATION
  Report Type: 
  Country: None (occurrence: None)
  Receive Date: 20051103
  Receipt Date: 20051103
  Transmission Date: 20060501
  Serious: Yes (Disabling)
  Sender: FDA-Public Use
  Company Number: None

PATIENT
  Age: 38 Year
  Sex: Female
  Weight: 62.5964 kg

DRUGS (2)
  1. FENFLURAMINE [Suspect]
     Indication: WEIGHT CONTROL
     Dates: start: 19961201, end: 19970901
  2. PHENTERMINE [Suspect]

REACTIONS (6)
  - AMNESIA [None]
  - CHRONIC FATIGUE SYNDROME [None]
  - FIBROMYALGIA [None]
  - INSOMNIA [None]
  - NEUROTOXICITY [None]
  - NEUROTRANSMITTER LEVEL ALTERED [None]
